FAERS Safety Report 15546202 (Version 1)
Quarter: 2018Q4

REPORT INFORMATION
  Report Type: Spontaneous
  Country: US (occurrence: US)
  Receive Date: 20181023
  Receipt Date: 20181023
  Transmission Date: 20190205
  Serious: Yes (Disabling)
  Sender: FDA-Public Use
  Company Number: None

PATIENT
  Age: 49 Year
  Sex: Female
  Weight: 90 kg

DRUGS (22)
  1. OXYMORPHONE [Concomitant]
     Active Substance: OXYMORPHONE
  2. KETAMINE [Concomitant]
     Active Substance: KETAMINE
  3. AIMOVIG [Suspect]
     Active Substance: ERENUMAB-AOOE
     Indication: MIGRAINE
     Dosage: ?          QUANTITY:2 INJECTION(S);OTHER FREQUENCY:GIVEN ONCE A MONTH;OTHER ROUTE:INJECTED INTO BELLY?
     Dates: start: 20180917, end: 20181014
  4. CITALOPRAM [Concomitant]
     Active Substance: CITALOPRAM HYDROBROMIDE
  5. TROKENDI XR [Concomitant]
     Active Substance: TOPIRAMATE
  6. TRAZODONE [Concomitant]
     Active Substance: TRAZODONE HYDROCHLORIDE
  7. DICLOFENAC POTASSIUM. [Concomitant]
     Active Substance: DICLOFENAC POTASSIUM
  8. TURMERIC WITH CURCUMIN [Concomitant]
  9. REFRESH OPTIVE ADVANCED [Concomitant]
     Active Substance: CARBOXYMETHYLCELLULOSE SODIUM\GLYCERIN\POLYSORBATE 80
  10. SALMON OIL [Concomitant]
     Active Substance: FISH OIL
  11. BUPROPION SR [Concomitant]
     Active Substance: BUPROPION HYDROCHLORIDE
  12. ESTRADIOL. [Concomitant]
     Active Substance: ESTRADIOL
  13. BOSWELLIA SERRATA EXTRACT [Concomitant]
     Active Substance: INDIAN FRANKINCENSE
  14. VITAMIN D [Concomitant]
     Active Substance: CHOLECALCIFEROL
  15. AVENOVA [Concomitant]
     Active Substance: HYPOCHLOROUS ACID
  16. LEVOTHYROXINE. [Concomitant]
     Active Substance: LEVOTHYROXINE
  17. XIIDRA [Concomitant]
     Active Substance: LIFITEGRAST
  18. DHE-45 [Concomitant]
     Active Substance: DIHYDROERGOTAMINE MESYLATE
  19. CENTRUM MULTI-VITAMIN [Concomitant]
  20. MELATONIN [Concomitant]
     Active Substance: MELATONIN
  21. CEVIMELENE HCL [Concomitant]
  22. ARIPIPRAZOLE. [Concomitant]
     Active Substance: ARIPIPRAZOLE

REACTIONS (8)
  - Myalgia [None]
  - Condition aggravated [None]
  - Product complaint [None]
  - Fatigue [None]
  - Constipation [None]
  - Arthralgia [None]
  - Migraine [None]
  - Muscle spasms [None]

NARRATIVE: CASE EVENT DATE: 20180918
